FAERS Safety Report 13763135 (Version 1)
Quarter: 2017Q3

REPORT INFORMATION
  Report Type: Spontaneous
  Country: US (occurrence: US)
  Receive Date: 20170718
  Receipt Date: 20170718
  Transmission Date: 20171127
  Serious: Yes (Death)
  Sender: FDA-Public Use
  Company Number: None

PATIENT
  Age: 47 Year
  Sex: Male
  Weight: 85 kg

DRUGS (4)
  1. HOSPIRA [Concomitant]
  2. OLANZAPINE INJECTION [Suspect]
     Active Substance: OLANZAPINE
     Indication: AGITATION
     Dosage: ?          OTHER DOSE:MG;OTHER FREQUENCY:ONE TIME;?
     Route: 030
     Dates: start: 20170715, end: 20170715
  3. DIPHENHYDRAMINE. [Suspect]
     Active Substance: DIPHENHYDRAMINE
     Indication: AGITATION
     Dosage: ?          OTHER DOSE:MG;OTHER FREQUENCY:ONE TIME;?
     Route: 030
     Dates: start: 20170715, end: 20170715
  4. LORAZEPAM. [Concomitant]
     Active Substance: LORAZEPAM

REACTIONS (6)
  - Anxiety [None]
  - Blood pressure increased [None]
  - Abnormal behaviour [None]
  - Cardio-respiratory arrest [None]
  - Agitation [None]
  - Hyperhidrosis [None]

NARRATIVE: CASE EVENT DATE: 20170715
